FAERS Safety Report 6367879-8 (Version None)
Quarter: 2009Q3

REPORT INFORMATION
  Report Type: 
  Country: None (occurrence: None)
  Receive Date: 20090922
  Receipt Date: 20070615
  Transmission Date: 20100115
  Serious: Yes (Hospitalization, Other)
  Sender: FDA-Public Use
  Company Number: US-ASTRAZENECA-2006UW24207

PATIENT
  Age: 579 Month
  Sex: Male
  Weight: 73 kg

DRUGS (21)
  1. SEROQUEL [Suspect]
     Indication: SLEEP DISORDER
     Route: 048
     Dates: start: 20030101, end: 20060101
  2. SEROQUEL [Suspect]
     Dosage: 25 MG - 600 MG
     Route: 048
     Dates: start: 20041208, end: 20060531
  3. RISPERDAL [Suspect]
     Dates: start: 20061008
  4. ZYPREXA [Suspect]
     Indication: PSYCHOTIC DISORDER
     Dosage: 7.5 MG - 20 MG
     Dates: start: 19990412
  5. GEODON [Concomitant]
  6. NAVANE [Concomitant]
  7. CELEXA [Concomitant]
     Indication: AFFECTIVE DISORDER
     Dosage: 10 MG - 200 MG
     Route: 048
     Dates: start: 20040713
  8. CELEXA [Concomitant]
     Indication: DEPRESSION
     Dosage: 10 MG - 200 MG
     Route: 048
     Dates: start: 20040713
  9. KLONOPIN [Concomitant]
     Indication: ANXIETY
     Dosage: 2 MG - 3 MG
     Route: 048
     Dates: start: 20040713
  10. HYDROCHLOROTHIAZIDE [Concomitant]
     Dates: start: 20040713
  11. LIPITOR [Concomitant]
     Dates: start: 20040713
  12. ALTACE [Concomitant]
     Dates: start: 20040713
  13. COZAAR [Concomitant]
     Dates: start: 20050201
  14. CITALOPRAM HYDROBROMIDE [Concomitant]
     Dates: start: 20050316
  15. TRILEPTAL [Concomitant]
     Indication: AFFECTIVE DISORDER
     Dosage: 450 MG - 600 MG
     Route: 048
     Dates: start: 20051025
  16. HYZAAR [Concomitant]
     Dosage: 50/12.5 MG Q.D
     Route: 048
     Dates: start: 20050123
  17. HALOPERIDOL DECANOATE [Concomitant]
     Dosage: 200 MG, EVERY FOUR WEEKS
     Route: 030
     Dates: start: 20060707
  18. COGENTIN [Concomitant]
     Route: 048
     Dates: start: 20060707
  19. TRAZODONE [Concomitant]
     Dates: start: 20060531
  20. WELLBUTRIN XL [Concomitant]
     Indication: DEPRESSION
     Dates: start: 20050201
  21. ASPIRIN [Concomitant]
     Dosage: 81 MG - 325 MG
     Route: 048
     Dates: start: 20050328

REACTIONS (4)
  - DIABETES MELLITUS [None]
  - HYPOGLYCAEMIA [None]
  - HYPOGLYCAEMIC COMA [None]
  - SYNCOPE [None]
